FAERS Safety Report 8381713-6 (Version None)
Quarter: 2012Q2

REPORT INFORMATION
  Report Type: 
  Country: None (occurrence: None)
  Receive Date: 20120524
  Receipt Date: 20120514
  Transmission Date: 20120825
  Serious: Yes (Other)
  Sender: FDA-Public Use
  Company Number: US-BIOGENIDEC-2011BI033754

PATIENT
  Age: 37 Year
  Sex: Female

DRUGS (5)
  1. KLONOPIN [Concomitant]
  2. PROVIGIL [Concomitant]
     Indication: ASTHENIA
     Route: 048
  3. AVONEX [Suspect]
     Indication: MULTIPLE SCLEROSIS
     Route: 030
     Dates: start: 20030507
  4. SYNTHROID [Concomitant]
     Indication: HYPOTHYROIDISM
     Route: 048
     Dates: start: 20070101
  5. BENZODIAZEPINE [Concomitant]

REACTIONS (13)
  - MENTAL IMPAIRMENT [None]
  - MULTIPLE SCLEROSIS RELAPSE [None]
  - CAROTID ARTERY OCCLUSION [None]
  - SENSE OF OPPRESSION [None]
  - ANXIETY [None]
  - STRESS [None]
  - ASTHENIA [None]
  - MIGRAINE [None]
  - AMNESIA [None]
  - MENOMETRORRHAGIA [None]
  - DRUG WITHDRAWAL CONVULSIONS [None]
  - CONVULSION [None]
  - WEIGHT INCREASED [None]
